FAERS Safety Report 18295953 (Version 1)
Quarter: 2020Q3

REPORT INFORMATION
  Report Type: Report from Study
  Country: FR (occurrence: FR)
  Receive Date: 20200922
  Receipt Date: 20200922
  Transmission Date: 20201103
  Serious: Yes (Other)
  Sender: FDA-Public Use
  Company Number: FR-ROCHE-2680731

PATIENT
  Age: 62 Year
  Sex: Male
  Weight: 80 kg

DRUGS (3)
  1. VISMODEGIB. [Suspect]
     Active Substance: VISMODEGIB
     Route: 065
     Dates: start: 20120329
  2. VISMODEGIB. [Suspect]
     Active Substance: VISMODEGIB
     Route: 065
     Dates: start: 20120509
  3. VISMODEGIB. [Suspect]
     Active Substance: VISMODEGIB
     Indication: CHONDROSARCOMA
     Route: 065
     Dates: start: 20120220

REACTIONS (2)
  - Embolism [Unknown]
  - Hypoalbuminaemia [Unknown]
